APPROVED DRUG PRODUCT: HECTOROL
Active Ingredient: DOXERCALCIFEROL
Strength: 4MCG/2ML (2MCG/ML)
Dosage Form/Route: INJECTABLE;INJECTION
Application: N021027 | Product #001
Applicant: SANOFI GENZYME
Approved: Apr 6, 2000 | RLD: Yes | RS: No | Type: DISCN